FAERS Safety Report 8535538-9 (Version None)
Quarter: 2012Q3

REPORT INFORMATION
  Report Type: 
  Country: None (occurrence: None)
  Receive Date: 20120725
  Receipt Date: 20120627
  Transmission Date: 20120928
  Serious: Yes (Hospitalization)
  Sender: FDA-Public Use
  Company Number: JP-009507513-1207JPN004832

PATIENT

DRUGS (4)
  1. TELAPREVIR [Suspect]
     Dosage: 1500 UNK, UNK
     Dates: start: 20120101
  2. PEG-INTRON [Suspect]
     Indication: HEPATITIS C
     Dosage: 80 MICROGRAM, QW
     Dates: start: 20120101
  3. REBETOL [Suspect]
     Indication: HEPATITIS C
     Dosage: 200 MG, BID
     Dates: start: 20120101
  4. TELAPREVIR [Suspect]
     Indication: HEPATITIS C
     Dosage: 2250 MG, UNK
     Dates: start: 20120101

REACTIONS (3)
  - RASH [None]
  - HYPERURICAEMIA [None]
  - RENAL DISORDER [None]
